FAERS Safety Report 7700036-9 (Version None)
Quarter: 2011Q3

REPORT INFORMATION
  Report Type: 
  Country: None (occurrence: None)
  Receive Date: 20110822
  Receipt Date: 20110810
  Transmission Date: 20111222
  Serious: Yes (Hospitalization, Other)
  Sender: FDA-Public Use
  Company Number: US-ELI_LILLY_AND_COMPANY-US201105004269

PATIENT
  Sex: Female
  Weight: 68.027 kg

DRUGS (13)
  1. ESTRADIOL [Concomitant]
  2. WELLBUTRIN [Concomitant]
  3. CYMBALTA [Suspect]
     Dosage: 90 MG, QD
     Route: 048
  4. TYLENOL W/ CODEINE NO. 3 [Concomitant]
  5. QUETIAPINE [Concomitant]
  6. METHYLPHENIDATE [Concomitant]
  7. NORVASC [Concomitant]
  8. CYMBALTA [Suspect]
     Indication: DEPRESSION
     Dosage: 60 MG, QD
     Route: 048
     Dates: start: 20080409
  9. CYMBALTA [Suspect]
     Dosage: 120 MG, QD
     Route: 048
     Dates: end: 20110502
  10. NEURONTIN [Concomitant]
  11. PROMETRIUM [Concomitant]
  12. REGLAN [Concomitant]
  13. T4 [Concomitant]

REACTIONS (9)
  - DEPRESSION [None]
  - RENAL CORTICAL NECROSIS [None]
  - UNEVALUABLE EVENT [None]
  - ISCHAEMIC HEPATITIS [None]
  - HEPATIC STEATOSIS [None]
  - HYPERHIDROSIS [None]
  - BILIARY DILATATION [None]
  - CHEST PAIN [None]
  - NEPHROLITHIASIS [None]
